FAERS Safety Report 7035660-2 (Version None)
Quarter: 2010Q4

REPORT INFORMATION
  Report Type: 
  Country: None (occurrence: None)
  Receive Date: 20101008
  Receipt Date: 20101001
  Transmission Date: 20110411
  Serious: Yes (Hospitalization)
  Sender: FDA-Public Use
  Company Number: CA-MERCK-1010USA00391

PATIENT
  Sex: Female

DRUGS (5)
  1. FOSAMAX [Suspect]
     Route: 048
  2. REMICADE [Suspect]
     Route: 065
  3. ASACOL [Concomitant]
     Route: 048
  4. NEXIUM [Concomitant]
     Route: 048
  5. VITAMIN D (UNSPECIFIED) [Concomitant]
     Route: 048

REACTIONS (12)
  - ABDOMINAL PAIN [None]
  - AMNESIA [None]
  - ARTHRALGIA [None]
  - GAIT DISTURBANCE [None]
  - HEADACHE [None]
  - JOINT RANGE OF MOTION DECREASED [None]
  - MASS [None]
  - NAUSEA [None]
  - PARAESTHESIA [None]
  - PRURITUS [None]
  - PYREXIA [None]
  - SPEECH DISORDER [None]
